FAERS Safety Report 5690496-X (Version None)
Quarter: 2008Q2

REPORT INFORMATION
  Report Type: 
  Country: None (occurrence: None)
  Receive Date: 20080401
  Receipt Date: 20040331
  Transmission Date: 20081010
  Serious: Yes (Death, Other)
  Sender: FDA-Public Use
  Company Number: US-ROCHE-363598

PATIENT
  Age: 55 Year
  Sex: Male
  Weight: 83 kg

DRUGS (9)
  1. PEGASYS [Suspect]
     Indication: HEPATITIS C
     Dosage: DOSE REGIMEN REPORTED AS 180 PER WEEK.
     Route: 058
     Dates: start: 20040301
  2. COPEGUS [Suspect]
     Indication: HEPATITIS C
     Dosage: DOSE REGIMEN REPORTED AS 800 PER DAY.
     Route: 048
     Dates: start: 20040301
  3. NORVIR [Concomitant]
  4. ACYCLOVIR [Concomitant]
  5. PAXIL [Concomitant]
  6. STAVUDINE [Concomitant]
  7. VIREAD [Concomitant]
  8. DELAVIRDINE [Concomitant]
  9. LEXIVA [Concomitant]

REACTIONS (5)
  - DEATH [None]
  - DIARRHOEA [None]
  - NEUTROPHIL COUNT DECREASED [None]
  - PLATELET COUNT DECREASED [None]
  - WHITE BLOOD CELL COUNT DECREASED [None]
